FAERS Safety Report 6132641-8 (Version None)
Quarter: 2009Q1

REPORT INFORMATION
  Report Type: 
  Country: None (occurrence: None)
  Receive Date: 20090324
  Receipt Date: 20090317
  Transmission Date: 20090719
  Serious: Yes (Death)
  Sender: FDA-Public Use
  Company Number: 2009-193338-NL

PATIENT
  Age: 78 Year
  Sex: Female

DRUGS (10)
  1. MIRTAZAPINE [Suspect]
  2. ZYPREXA [Suspect]
     Dosage: 2.5 MG DAILY
  3. ZOLOFT [Concomitant]
  4. AMITRIPTYLINE [Concomitant]
  5. AMBIEN [Concomitant]
  6. LORAZEPAM [Concomitant]
  7. LEXAPRO [Concomitant]
  8. TRAZODONE HCL [Concomitant]
  9. PHENYTOIN [Concomitant]
  10. ACYCLOVIR [Concomitant]

REACTIONS (2)
  - DRUG TOXICITY [None]
  - PNEUMONIA [None]
